FAERS Safety Report 7982432-8 (Version None)
Quarter: 2011Q4

REPORT INFORMATION
  Report Type: 
  Country: None (occurrence: None)
  Receive Date: 20111215
  Receipt Date: 20111207
  Transmission Date: 20120403
  Serious: Yes (Other)
  Sender: FDA-Public Use
  Company Number: PHHY2011CA88851

PATIENT
  Sex: Female

DRUGS (3)
  1. GILENYA [Suspect]
     Indication: RELAPSING-REMITTING MULTIPLE SCLEROSIS
     Dosage: 0.5 MG DAILY
     Route: 048
     Dates: start: 20111004
  2. AMITRIPTYLINE HCL [Concomitant]
     Dosage: 10 MG, UNK
  3. ATIVAN [Concomitant]
     Dosage: UNK UKN, UNK

REACTIONS (4)
  - ABNORMAL SENSATION IN EYE [None]
  - VISION BLURRED [None]
  - PARAESTHESIA ORAL [None]
  - HYPOAESTHESIA ORAL [None]
